FAERS Safety Report 9397395 (Version 4)
Quarter: 2013Q3

REPORT INFORMATION
  Report Type: Spontaneous
  Country: US (occurrence: None)
  Receive Date: 20130702
  Receipt Date: 20130925
  Transmission Date: 20140515
  Serious: Yes (Other)
  Sender: FDA-Public Use
  Company Number: 2013036612

PATIENT
  Age: 31 Year
  Sex: Female

DRUGS (3)
  1. BERINERT [Suspect]
     Indication: HEREDITARY ANGIOEDEMA
     Dosage: (FIRST DOSE OF BERINRET- MAR-2013 INTRAVENOUS (NOT OTHERWISE SPECIFIED)), (SECOND DOSE OF BERINERT-MAR2013 INTRAVENOUS (NOT OTHERWISE SPECIFIED))
     Route: 042
  2. CINRYZE [Suspect]
     Indication: PROPHYLAXIS
     Dosage: (1000 IU 1X/3 DAYS INTRAVENOUS (NOT OTHERWISE SPECIFIED))
     Route: 042
     Dates: start: 20130319
  3. FIRAZYR [Suspect]
     Indication: HEREDITARY ANGIOEDEMA

REACTIONS (4)
  - Liver function test abnormal [None]
  - Heart rate increased [None]
  - No therapeutic response [None]
  - Abdominal distension [None]
